FAERS Safety Report 16636158 (Version 1)
Quarter: 2019Q3

REPORT INFORMATION
  Report Type: Spontaneous
  Country: GB (occurrence: GB)
  Receive Date: 20190726
  Receipt Date: 20190726
  Transmission Date: 20191004
  Serious: Yes (Other)
  Sender: FDA-Public Use
  Company Number: GB-TEVA-2019-GB-1083483

PATIENT
  Age: 47 Year
  Sex: Female
  Weight: 46.26 kg

DRUGS (7)
  1. FEMOSTON [Concomitant]
     Active Substance: DYDROGESTERONE\ESTRADIOL
     Dosage: 1/10
  2. SUMATRIPTAN. [Concomitant]
     Active Substance: SUMATRIPTAN
     Route: 045
  3. HYLO-TEAR [Concomitant]
  4. CHLORAMPHENICOL [Concomitant]
     Active Substance: CHLORAMPHENICOL
     Route: 047
  5. DOXYCYCLINE. [Suspect]
     Active Substance: DOXYCYCLINE
     Indication: MEIBOMIAN GLAND DYSFUNCTION
     Dosage: 100 MILLIGRAM DAILY; TWICE DAILY, REDUCED TO ONCE DAILY AT NIGHT, THEN STOPPED.
     Route: 048
     Dates: end: 20190614
  6. DOXYCYCLINE. [Suspect]
     Active Substance: DOXYCYCLINE
     Dosage: TWICE DAILY, REDUCED TO ONCE DAILY, THEN STOPPED.
     Route: 048
     Dates: start: 20190610
  7. LEVOTHYROXINE. [Concomitant]
     Active Substance: LEVOTHYROXINE

REACTIONS (3)
  - Diarrhoea [Recovered/Resolved]
  - Migraine [Recovered/Resolved]
  - Vomiting [Recovered/Resolved]

NARRATIVE: CASE EVENT DATE: 20190611
